FAERS Safety Report 21915775 (Version 1)
Quarter: 2023Q1

REPORT INFORMATION
  Report Type: Spontaneous
  Country: US (occurrence: US)
  Receive Date: 20230126
  Receipt Date: 20230126
  Transmission Date: 20230417
  Serious: No
  Sender: FDA-Public Use
  Company Number: US-PFIZER INC-PV202300014530

PATIENT
  Age: 84 Year
  Sex: Female

DRUGS (1)
  1. RIFABUTIN [Suspect]
     Active Substance: RIFABUTIN
     Dosage: UNK

REACTIONS (2)
  - Nausea [Unknown]
  - Diarrhoea [Unknown]
